FAERS Safety Report 4975792-3 (Version None)
Quarter: 2006Q2

REPORT INFORMATION
  Report Type: 
  Country: None (occurrence: None)
  Receive Date: 20060411
  Receipt Date: 20060327
  Transmission Date: 20061013
  Serious: Yes (Hospitalization)
  Sender: FDA-Public Use
  Company Number: NO200603006821

PATIENT
  Age: 29 Year
  Sex: Female

DRUGS (3)
  1. CYMBALTA [Suspect]
     Indication: DEPRESSION
     Dosage: 60 MG, DAILY (1/D), ORAL
     Route: 048
     Dates: end: 20060210
  2. RITALIN (METHYLPHENIDAT HYDROCHLORIDE) [Concomitant]
  3. TOLVON /IRE/ (MIANSERIN HDYROCHLORIDE) [Concomitant]

REACTIONS (4)
  - ATTENTION DEFICIT/HYPERACTIVITY DISORDER [None]
  - CONVULSION [None]
  - EATING DISORDER [None]
  - TREMOR [None]
